FAERS Safety Report 5915655-X (Version None)
Quarter: 2008Q3

REPORT INFORMATION
  Report Type: 
  Country: None (occurrence: None)
  Receive Date: 20080909
  Receipt Date: 20080422
  Transmission Date: 20090109
  Serious: Yes (Hospitalization)
  Sender: FDA-Public Use
  Company Number: 163-20785-07120546 (0)

PATIENT
  Age: 69 Year
  Sex: Male

DRUGS (12)
  1. THALOMID [Suspect]
     Indication: MULTIPLE MYELOMA
     Dosage: 200 MG, 1 IN 1 D, ORAL : 150 MG, 3 IN 1 D, ORAL
     Route: 048
     Dates: start: 20071114, end: 20071101
  2. THALOMID [Suspect]
     Indication: MULTIPLE MYELOMA
     Dosage: 200 MG, 1 IN 1 D, ORAL : 150 MG, 3 IN 1 D, ORAL
     Route: 048
     Dates: start: 20071101, end: 20071211
  3. ASPIRIN [Concomitant]
  4. COMPAZINE [Concomitant]
  5. GEMFIBROZIL [Concomitant]
  6. METOPROLOL TARTRATE [Concomitant]
  7. PRILOSEC [Concomitant]
  8. COUMADIN [Concomitant]
  9. HYDROCODONE (HYDROCODONE) [Concomitant]
  10. ACETAMINOPHEN [Concomitant]
  11. LOVENOX [Concomitant]
  12. DECADRON [Concomitant]

REACTIONS (2)
  - BRADYCARDIA [None]
  - HYPOTENSION [None]
